FAERS Safety Report 18371041 (Version 2)
Quarter: 2021Q2

REPORT INFORMATION
  Report Type: Spontaneous
  Country: US (occurrence: US)
  Receive Date: 20201012
  Receipt Date: 20210405
  Transmission Date: 20210717
  Serious: No
  Sender: FDA-Public Use
  Company Number: US-ALEOR DERMACEUTICALS LTD-2020SCAL000434

PATIENT

DRUGS (1)
  1. CLOBETASOL PROPIONATE. [Suspect]
     Active Substance: CLOBETASOL PROPIONATE
     Indication: GRANULOMA ANNULARE
     Dosage: UNK
     Route: 061
     Dates: start: 20200907, end: 20200914

REACTIONS (2)
  - Product physical consistency issue [Unknown]
  - Inappropriate schedule of product administration [Unknown]

NARRATIVE: CASE EVENT DATE: 20200907
